FAERS Safety Report 8373057-3 (Version None)
Quarter: 2012Q2

REPORT INFORMATION
  Report Type: 
  Country: None (occurrence: None)
  Receive Date: 20120521
  Receipt Date: 20120510
  Transmission Date: 20120825
  Serious: Yes (Hospitalization)
  Sender: FDA-Public Use
  Company Number: US-VERTEX PHARMACEUTICALS INC.-AE-2012-006869

PATIENT
  Sex: Male
  Weight: 71.278 kg

DRUGS (4)
  1. INCIVEK [Suspect]
     Indication: HEPATITIS C
     Route: 048
     Dates: start: 20120330
  2. RIBASPHERE [Concomitant]
     Indication: HEPATITIS C
     Dates: start: 20120330, end: 20120501
  3. PEGASYS [Concomitant]
     Indication: HEPATITIS C
     Route: 058
     Dates: start: 20120330
  4. RIBASPHERE [Concomitant]
     Dates: start: 20120501

REACTIONS (7)
  - DIARRHOEA [None]
  - DYSPNOEA [None]
  - CHEST PAIN [None]
  - ANAEMIA [None]
  - DECREASED APPETITE [None]
  - FATIGUE [None]
  - DIZZINESS [None]
